FAERS Safety Report 5146348-7 (Version None)
Quarter: 2006Q4

REPORT INFORMATION
  Report Type: 
  Country: None (occurrence: None)
  Receive Date: 20061102
  Receipt Date: 20061019
  Transmission Date: 20070319
  Serious: Yes (Hospitalization)
  Sender: FDA-Public Use
  Company Number: 2005131176

PATIENT
  Age: 42 Year
  Sex: Male

DRUGS (8)
  1. SUTENT [Suspect]
     Indication: RENAL CELL CARCINOMA STAGE UNSPECIFIED
     Dosage: (50 MG, DAILY), ORAL
     Route: 048
     Dates: start: 20050829
  2. METOPROLOL TARTRATE [Concomitant]
  3. ZOLOFT [Concomitant]
  4. FAMVIR [Concomitant]
  5. OMEPRAZOLE [Concomitant]
  6. PROCTOSEDYL ^HOECHST^ (CINCHOCAINE HYDROCHLORIDE, HYDROCORTISONE) [Concomitant]
  7. MAXOLON [Concomitant]
  8. DIFFLAM (BENZYDAMINE HYDROCHLORIDE) [Concomitant]

REACTIONS (3)
  - CHILLS [None]
  - LOWER RESPIRATORY TRACT INFECTION [None]
  - MALAISE [None]
